FAERS Safety Report 9437363 (Version 1)
Quarter: 2013Q3

REPORT INFORMATION
  Report Type: Report from Study
  Country: KR (occurrence: KR)
  Receive Date: 20130802
  Receipt Date: 20130802
  Transmission Date: 20140515
  Serious: Yes (Hospitalization)
  Sender: FDA-Public Use
  Company Number: KR-JNJFOC-20130713487

PATIENT
  Age: 17 Year
  Sex: Male
  Weight: 56.1 kg

DRUGS (8)
  1. REMICADE [Suspect]
     Indication: CROHN^S DISEASE
     Dosage: FREQUENCY 1
     Route: 042
     Dates: start: 20111228
  2. REMICADE [Suspect]
     Indication: CROHN^S DISEASE
     Dosage: FREQUENCY 1
     Route: 042
     Dates: start: 201202, end: 20121017
  3. AZATHIOPRINE [Concomitant]
     Indication: CROHN^S DISEASE
     Dosage: 0.75 TAB
     Route: 048
     Dates: start: 20101102, end: 20110704
  4. SULFASALAZINE [Concomitant]
     Indication: CROHN^S DISEASE
     Dosage: 2.66 TAB
     Route: 048
     Dates: start: 20120225, end: 20120626
  5. SULFASALAZINE [Concomitant]
     Indication: CROHN^S DISEASE
     Dosage: 2.66 TAB
     Route: 048
     Dates: start: 20100721, end: 20110704
  6. AZATHIOPRINE [Concomitant]
     Indication: CROHN^S DISEASE
     Dosage: 1 TAB
     Route: 048
     Dates: start: 20120307
  7. AZATHIOPRINE [Concomitant]
     Indication: CROHN^S DISEASE
     Dosage: 0.75 TAB
     Route: 048
     Dates: start: 20120222, end: 20120306
  8. SOLONDO [Concomitant]
     Indication: CROHN^S DISEASE
     Dosage: AT VARIOUS DOSE AND FREQUENCY
     Route: 048
     Dates: start: 20100721, end: 20120717

REACTIONS (1)
  - Crohn^s disease [Recovered/Resolved]
